FAERS Safety Report 17163292 (Version 1)
Quarter: 2019Q4

REPORT INFORMATION
  Report Type: Spontaneous
  Country: FR (occurrence: FR)
  Receive Date: 20191217
  Receipt Date: 20191217
  Transmission Date: 20200122
  Serious: Yes (Other)
  Sender: FDA-Public Use
  Company Number: FR-ALVOGEN-2019-ALVOGEN-102181

PATIENT
  Age: 66 Year
  Sex: Female

DRUGS (2)
  1. EUPHYTOSIS NIGHT BAG [HERBALS] [Interacting]
     Active Substance: HERBALS
     Indication: PRODUCT USED FOR UNKNOWN INDICATION
     Dosage: UNK
     Route: 065
  2. ATENOLOL. [Suspect]
     Active Substance: ATENOLOL
     Indication: PRODUCT USED FOR UNKNOWN INDICATION
     Dosage: UNK
     Route: 065

REACTIONS (8)
  - Skin irritation [Recovered/Resolved]
  - Arrhythmia [Unknown]
  - Insomnia [Recovered/Resolved]
  - Therapeutic product ineffective [Recovered/Resolved]
  - Drug interaction [Unknown]
  - Rash macular [Recovered/Resolved]
  - Abdominal pain upper [Recovered/Resolved]
  - Dyspnoea [Recovered/Resolved]
